FAERS Safety Report 6786135-7 (Version None)
Quarter: 2010Q2

REPORT INFORMATION
  Report Type: 
  Country: None (occurrence: None)
  Receive Date: 20100623
  Receipt Date: 20100120
  Transmission Date: 20101027
  Serious: No
  Sender: FDA-Public Use
  Company Number: DE-SANOFI-AVENTIS-2010SA003379

PATIENT
  Sex: Male

DRUGS (1)
  1. TRENTAL [Suspect]
     Indication: DIZZINESS
     Route: 042

REACTIONS (1)
  - TROPONIN T INCREASED [None]
